FAERS Safety Report 14310008 (Version 1)
Quarter: 2017Q4

REPORT INFORMATION
  Report Type: Spontaneous
  Country: AT (occurrence: AT)
  Receive Date: 20171220
  Receipt Date: 20171220
  Transmission Date: 20180321
  Serious: Yes (Other)
  Sender: FDA-Public Use
  Company Number: PHHY2017AT189478

PATIENT
  Sex: Female

DRUGS (2)
  1. COSENTYX [Suspect]
     Active Substance: SECUKINUMAB
     Indication: PSORIATIC ARTHROPATHY
     Dosage: 300 MG, UNK
     Route: 065
  2. COSENTYX [Suspect]
     Active Substance: SECUKINUMAB
     Dosage: 600 MG, UNK
     Route: 065

REACTIONS (8)
  - Tuberculosis [Unknown]
  - Fungal infection [Unknown]
  - Weight decreased [Unknown]
  - Oesophageal infection [Unknown]
  - Overdose [Unknown]
  - Alopecia [Unknown]
  - Psoriasis [Unknown]
  - Vaginal infection [Unknown]
